FAERS Safety Report 23896504 (Version 1)
Quarter: 2024Q2

REPORT INFORMATION
  Report Type: Spontaneous
  Country: US (occurrence: US)
  Receive Date: 20240524
  Receipt Date: 20240524
  Transmission Date: 20240715
  Serious: Yes (Hospitalization)
  Sender: FDA-Public Use
  Company Number: US-PARI RESPIRATORY EQUIPMENT, INC.-2024PAR00012

PATIENT
  Age: 44 Year
  Sex: Female
  Weight: 70.34 kg

DRUGS (7)
  1. KITABIS PAK [Suspect]
     Active Substance: TOBRAMYCIN
     Indication: Cystic fibrosis
     Dosage: 300 MG/5 ML VIA NEBULIZER, 2X/DAY X 28 DAYS THEN 28 DAYS OFF, ALTERNATE EVERY OTHER MONTH
     Dates: start: 20221229
  2. KITABIS PAK [Suspect]
     Active Substance: TOBRAMYCIN
     Indication: Lung disorder
  3. KITABIS PAK [Suspect]
     Active Substance: TOBRAMYCIN
     Indication: Bronchiectasis
  4. KITABIS PAK [Suspect]
     Active Substance: TOBRAMYCIN
     Indication: Infective exacerbation of bronchiectasis
  5. KITABIS PAK [Suspect]
     Active Substance: TOBRAMYCIN
     Indication: Ill-defined disorder
  6. PULMOZYME [Concomitant]
     Active Substance: DORNASE ALFA
  7. SYMDEKO [Concomitant]
     Active Substance: IVACAFTOR\TEZACAFTOR
     Dosage: 100 MG/150 MG-150 MG

REACTIONS (2)
  - Bronchitis [Unknown]
  - Dyspnoea [Unknown]

NARRATIVE: CASE EVENT DATE: 20240111
